FAERS Safety Report 8564046-4 (Version None)
Quarter: 2012Q3

REPORT INFORMATION
  Report Type: 
  Country: None (occurrence: None)
  Receive Date: 20120803
  Receipt Date: 20120724
  Transmission Date: 20120928
  Serious: Yes (Hospitalization)
  Sender: FDA-Public Use
  Company Number: CA-UCBSA-061433

PATIENT
  Age: 81 Year
  Sex: Female

DRUGS (10)
  1. HZT [Concomitant]
     Indication: HYPERTENSION
     Route: 048
  2. LIPITOR [Concomitant]
     Indication: BLOOD CHOLESTEROL
     Route: 048
  3. CRESTOR [Concomitant]
  4. CIMZIA [Suspect]
     Route: 058
     Dates: start: 20110616, end: 20110714
  5. FOLIC ACID [Concomitant]
  6. CIMZIA [Suspect]
     Indication: RHEUMATOID ARTHRITIS
     Route: 058
     Dates: start: 20110811
  7. RABEPRAZOLE SODIUM [Concomitant]
  8. METHOTREXATE [Concomitant]
     Indication: RHEUMATOID ARTHRITIS
     Route: 058
     Dates: start: 20101101
  9. NORVASC [Concomitant]
     Indication: HYPERTENSION
     Route: 048
  10. ATACAND [Concomitant]

REACTIONS (6)
  - TREMOR [None]
  - PYREXIA [None]
  - CONFUSIONAL STATE [None]
  - CELLULITIS [None]
  - GASTRITIS [None]
  - INFLAMMATION [None]
